FAERS Safety Report 14402526 (Version 2)
Quarter: 2018Q1

REPORT INFORMATION
  Report Type: Spontaneous
  Country: US (occurrence: US)
  Receive Date: 20180117
  Receipt Date: 20180210
  Transmission Date: 20180509
  Serious: No
  Sender: FDA-Public Use
  Company Number: US-009507513-1801USA006050

PATIENT
  Sex: Female

DRUGS (1)
  1. ASMANEX [Suspect]
     Active Substance: MOMETASONE FUROATE
     Indication: ASTHMA
     Dosage: 2 INHALATIONS IN THE EVENING/2 INHALATION IN PM
     Route: 055
     Dates: start: 201605

REACTIONS (3)
  - Wheezing [Recovering/Resolving]
  - Drug dose omission [Unknown]
  - Product quality issue [Unknown]
